FAERS Safety Report 4332720-1 (Version None)
Quarter: 2004Q1

REPORT INFORMATION
  Report Type: 
  Country: None (occurrence: None)
  Receive Date: 20040330
  Receipt Date: 20040316
  Transmission Date: 20041129
  Serious: Yes (Hospitalization)
  Sender: FDA-Public Use
  Company Number: US-JNJFOC-20031205427

PATIENT
  Age: 70 Year
  Sex: Female

DRUGS (13)
  1. REMICADE [Suspect]
     Indication: CROHN'S DISEASE
     Dosage: 5 MG/KG
     Dates: start: 20031120
  2. METHOTREXATE SODIUM [Concomitant]
  3. PREDNISONE [Concomitant]
  4. PREMARIN [Concomitant]
  5. ALLOPURINOL [Concomitant]
  6. AVANDIA [Concomitant]
  7. GLUCOTROL [Concomitant]
  8. ENALAPRIL/HCTZ (VASERETIC) [Concomitant]
  9. ASACOL [Concomitant]
  10. PRILOSEC [Concomitant]
  11. TOPROL (METOPROLOL SUCCINATE) [Concomitant]
  12. UNASYN (UNACID) [Concomitant]
  13. ZITHROMAX [Concomitant]

REACTIONS (14)
  - BRAIN CANCER METASTATIC [None]
  - BRAIN NEOPLASM [None]
  - DEPRESSION [None]
  - EMPYEMA [None]
  - HAEMODIALYSIS [None]
  - HYPOTENSION [None]
  - INTESTINAL HYPOMOTILITY [None]
  - NOCARDIOSIS [None]
  - NUCLEAR MAGNETIC RESONANCE IMAGING BRAIN ABNORMAL [None]
  - PNEUMONIA [None]
  - RENAL FAILURE [None]
  - RENAL TUBULAR NECROSIS [None]
  - SEPSIS [None]
  - ULTRASOUND ABDOMEN ABNORMAL [None]
